FAERS Safety Report 9052318 (Version 4)
Quarter: 2013Q3

REPORT INFORMATION
  Report Type: Spontaneous
  Country: US (occurrence: US)
  Receive Date: 20130206
  Receipt Date: 20130712
  Transmission Date: 20140515
  Serious: Yes (Hospitalization)
  Sender: FDA-Public Use
  Company Number: US-PFIZER INC-2013048562

PATIENT
  Age: 66 Year
  Sex: Male
  Weight: 86 kg

DRUGS (4)
  1. LIPITOR [Suspect]
     Indication: BLOOD CHOLESTEROL INCREASED
     Dosage: 10 MG, ONCE A DAY
     Route: 048
  2. CELEBREX [Suspect]
     Indication: ARTHRALGIA
     Dosage: 200 MG, 2X/DAY
     Route: 048
  3. ASPIRIN [Concomitant]
     Dosage: UNK, ONCE A DAY
  4. GLUCOSAMINE [Concomitant]
     Dosage: UNK

REACTIONS (2)
  - Arthropathy [Unknown]
  - Drug ineffective [Unknown]
